FAERS Safety Report 15021710 (Version 3)
Quarter: 2018Q3

REPORT INFORMATION
  Report Type: Spontaneous
  Country: US (occurrence: US)
  Receive Date: 20180618
  Receipt Date: 20180723
  Transmission Date: 20181010
  Serious: No
  Sender: FDA-Public Use
  Company Number: US-GLAXOSMITHKLINE-US2018107246

PATIENT
  Sex: Male

DRUGS (3)
  1. ADVAIR DISKUS [Suspect]
     Active Substance: FLUTICASONE PROPIONATE\SALMETEROL XINAFOATE
     Indication: COUGH
     Dosage: 1 PUFF(S), QD
  2. AMOXICILLIN. [Concomitant]
     Active Substance: AMOXICILLIN
  3. VENTOLIN HFA [Concomitant]
     Active Substance: ALBUTEROL SULFATE

REACTIONS (8)
  - Circumstance or information capable of leading to medication error [Unknown]
  - Underdose [Unknown]
  - Inappropriate schedule of drug administration [Unknown]
  - Wrong technique in device usage process [Unknown]
  - Oral infection [Unknown]
  - Off label use [Unknown]
  - Product use in unapproved indication [Unknown]
  - Drug dispensing error [Unknown]
